FAERS Safety Report 16535704 (Version 1)
Quarter: 2019Q3

REPORT INFORMATION
  Report Type: Spontaneous
  Country: DE (occurrence: DE)
  Receive Date: 20190705
  Receipt Date: 20190705
  Transmission Date: 20191004
  Serious: Yes (Hospitalization, Other)
  Sender: FDA-Public Use
  Company Number: DE-TEVA-2019-DE-1071719

PATIENT
  Age: 51 Year
  Sex: Female

DRUGS (1)
  1. COPAXONE [Suspect]
     Active Substance: GLATIRAMER ACETATE
     Indication: MULTIPLE SCLEROSIS
     Dates: start: 20190520, end: 20190528

REACTIONS (11)
  - Unresponsive to stimuli [Unknown]
  - Vomiting [Recovered/Resolved]
  - Acute kidney injury [Recovered/Resolved]
  - Dyspnoea [Recovered/Resolved]
  - Anal incontinence [Recovered/Resolved]
  - Soft tissue necrosis [Recovering/Resolving]
  - Hyperventilation [Recovered/Resolved]
  - Chills [Recovered/Resolved]
  - Sense of oppression [Recovered/Resolved]
  - Urinary incontinence [Recovered/Resolved]
  - Vasculitis [Recovering/Resolving]

NARRATIVE: CASE EVENT DATE: 20190524
